FAERS Safety Report 19037027 (Version 1)
Quarter: 2021Q1

REPORT INFORMATION
  Report Type: Spontaneous
  Country: US (occurrence: US)
  Receive Date: 20210322
  Receipt Date: 20210322
  Transmission Date: 20210420
  Serious: Yes (Other)
  Sender: FDA-Public Use
  Company Number: None

PATIENT
  Age: 73 Year
  Sex: Female
  Weight: 76.32 kg

DRUGS (11)
  1. CETIRIZINE [Concomitant]
     Active Substance: CETIRIZINE HYDROCHLORIDE
  2. CALCIUM 600+D [Concomitant]
     Active Substance: CALCIUM\VITAMIN D
  3. FLUOXETINE [Concomitant]
     Active Substance: FLUOXETINE HYDROCHLORIDE
  4. BUPROPION. [Concomitant]
     Active Substance: BUPROPION
  5. LEVOTHYROXINE. [Concomitant]
     Active Substance: LEVOTHYROXINE
  6. GABAPENTIN. [Concomitant]
     Active Substance: GABAPENTIN
  7. ATORVASTATIN [Concomitant]
     Active Substance: ATORVASTATIN
  8. ALEVE [Concomitant]
     Active Substance: NAPROXEN SODIUM
  9. CAPECITABINE. [Suspect]
     Active Substance: CAPECITABINE
     Indication: COLON CANCER
     Route: 048
     Dates: start: 20210305
  10. LOSARTAN. [Concomitant]
     Active Substance: LOSARTAN
  11. OMEPRAZOLE. [Concomitant]
     Active Substance: OMEPRAZOLE

REACTIONS (2)
  - Diarrhoea [None]
  - Vomiting [None]

NARRATIVE: CASE EVENT DATE: 20210322
